FAERS Safety Report 24183847 (Version 18)
Quarter: 2025Q2

REPORT INFORMATION
  Report Type: Report from Study
  Country: AR (occurrence: AR)
  Receive Date: 20240807
  Receipt Date: 20250619
  Transmission Date: 20250716
  Serious: Yes (Other)
  Sender: NOVARTIS
  Company Number: AR-002147023-NVSC2024AR144931

PATIENT
  Age: 73 Year
  Sex: Female

DRUGS (13)
  1. KISQALI [Suspect]
     Active Substance: RIBOCICLIB SUCCINATE
     Indication: Breast cancer metastatic
     Route: 065
     Dates: start: 20240517
  2. KISQALI [Suspect]
     Active Substance: RIBOCICLIB SUCCINATE
     Route: 048
     Dates: start: 20240610
  3. KISQALI [Suspect]
     Active Substance: RIBOCICLIB SUCCINATE
     Dosage: 600 MG, QD (3 OF  200 MG)
     Route: 048
     Dates: start: 20240611, end: 20241009
  4. KISQALI [Suspect]
     Active Substance: RIBOCICLIB SUCCINATE
     Route: 048
     Dates: start: 20240718
  5. KISQALI [Suspect]
     Active Substance: RIBOCICLIB SUCCINATE
     Route: 048
  6. KISQALI [Suspect]
     Active Substance: RIBOCICLIB SUCCINATE
     Route: 048
     Dates: start: 20241007
  7. KISQALI [Suspect]
     Active Substance: RIBOCICLIB SUCCINATE
     Dosage: 600 MG, QD
     Route: 048
  8. KISQALI [Suspect]
     Active Substance: RIBOCICLIB SUCCINATE
     Route: 065
     Dates: end: 202410
  9. LETROZOLE [Suspect]
     Active Substance: LETROZOLE
     Indication: Breast cancer metastatic
     Dosage: 1 DOSAGE FORM, QD (2.5 MG)
     Route: 048
     Dates: start: 20240611, end: 20241009
  10. LETROZOLE [Suspect]
     Active Substance: LETROZOLE
     Indication: Gastrointestinal carcinoma
     Dosage: 1 DOSAGE FORM, QD
     Route: 048
     Dates: start: 20241007
  11. LETROZOLE [Suspect]
     Active Substance: LETROZOLE
     Dosage: 2.5 MG, QD
     Route: 048
  12. LETROZOLE [Suspect]
     Active Substance: LETROZOLE
     Route: 065
     Dates: end: 202410
  13. IRON [Concomitant]
     Active Substance: IRON
     Indication: Product used for unknown indication
     Dosage: 1 DOSAGE FORM, QD
     Route: 065

REACTIONS (29)
  - Stoma site irritation [Unknown]
  - Stoma site inflammation [Unknown]
  - Intestinal obstruction [Unknown]
  - Visual impairment [Unknown]
  - Neutropenia [Unknown]
  - Alopecia [Recovered/Resolved]
  - Nodule [Unknown]
  - Fatigue [Unknown]
  - Toxicity to various agents [Recovered/Resolved]
  - Platelet count decreased [Unknown]
  - Red blood cell count decreased [Unknown]
  - Humidity intolerance [Not Recovered/Not Resolved]
  - Haematocrit abnormal [Unknown]
  - Confusional state [Recovered/Resolved]
  - Stress [Unknown]
  - Mental fatigue [Unknown]
  - White blood cell count decreased [Recovering/Resolving]
  - Irritability [Recovered/Resolved]
  - Pulmonary mass [Recovered/Resolved]
  - Infection [Unknown]
  - Secretion discharge [Unknown]
  - Weight increased [Unknown]
  - Malaise [Unknown]
  - Crying [Unknown]
  - Agitation [Unknown]
  - Iodine allergy [Unknown]
  - Temperature intolerance [Recovered/Resolved]
  - Anxiety [Recovered/Resolved]
  - Off label use [Unknown]

NARRATIVE: CASE EVENT DATE: 20240601
